FAERS Safety Report 4466379-X (Version None)
Quarter: 2004Q3

REPORT INFORMATION
  Report Type: 
  Country: None (occurrence: None)
  Receive Date: 20040930
  Receipt Date: 20040920
  Transmission Date: 20050211
  Serious: Yes (Other)
  Sender: FDA-Public Use
  Company Number: PROG00204003380

PATIENT
  Age: 42 Year
  Sex: Female
  Weight: 58.9676 kg

DRUGS (2)
  1. PROMETRIUM [Suspect]
     Dosage: SEE IMAGE
     Dates: start: 20040902, end: 20040907
  2. PROMETRIUM [Suspect]
     Dosage: SEE IMAGE
     Dates: start: 20040908, end: 20040918

REACTIONS (4)
  - ABORTION SPONTANEOUS [None]
  - GENITAL PRURITUS FEMALE [None]
  - VAGINAL ERYTHEMA [None]
  - VAGINAL MUCOSAL BLISTERING [None]
